FAERS Safety Report 5322372-6 (Version None)
Quarter: 2007Q2

REPORT INFORMATION
  Report Type: 
  Country: None (occurrence: None)
  Receive Date: 20070511
  Receipt Date: 20070508
  Transmission Date: 20071010
  Serious: Yes (Life-Threatening, Hospitalization, Disabling, Other)
  Sender: FDA-Public Use
  Company Number: CA-ASTRAZENECA-2007UW07360

PATIENT
  Age: 89 Year
  Sex: Female

DRUGS (8)
  1. SEROQUEL [Suspect]
     Indication: ANXIETY DISORDER
     Route: 048
     Dates: start: 20030715, end: 20070320
  2. SEROQUEL [Suspect]
     Indication: PSYCHOTIC DISORDER
     Route: 048
     Dates: start: 20030715, end: 20070320
  3. SEROQUEL [Suspect]
     Dosage: NOON
     Route: 048
  4. SEROQUEL [Suspect]
     Dosage: NOON
     Route: 048
  5. TRAZODONE HCL [Concomitant]
  6. PREMARIN [Concomitant]
     Route: 067
  7. LOSEC [Concomitant]
     Route: 048
  8. L-THYROXIN [Concomitant]

REACTIONS (2)
  - CHOLANGITIS [None]
  - THROMBOCYTOPENIA [None]
